FAERS Safety Report 11170290 (Version 1)
Quarter: 2015Q2

REPORT INFORMATION
  Report Type: Report from Study
  Country: FR (occurrence: FR)
  Receive Date: 20150608
  Receipt Date: 20150608
  Transmission Date: 20150821
  Serious: Yes (Hospitalization)
  Sender: FDA-Public Use
  Company Number: FR-ROCHE-1161183

PATIENT
  Age: 61 Year
  Sex: Female

DRUGS (9)
  1. CORTANCYL [Concomitant]
     Active Substance: PREDNISONE
     Route: 065
  2. ORENCIA [Concomitant]
     Active Substance: ABATACEPT
  3. RITUXIMAB [Suspect]
     Active Substance: RITUXIMAB
     Dosage: DAY 1
     Route: 042
     Dates: start: 20080707
  4. RITUXIMAB [Suspect]
     Active Substance: RITUXIMAB
     Dosage: DAY 15
     Route: 042
     Dates: start: 20080723, end: 20100429
  5. METHOTREXATE [Concomitant]
     Active Substance: METHOTREXATE
     Route: 065
  6. RITUXIMAB [Suspect]
     Active Substance: RITUXIMAB
     Dosage: DAY 15
     Route: 042
     Dates: start: 20060530
  7. FORTUM [Concomitant]
     Active Substance: CEFTAZIDIME
  8. RITUXIMAB [Suspect]
     Active Substance: RITUXIMAB
     Indication: RHEUMATOID ARTHRITIS
     Dosage: DAY 1
     Route: 042
     Dates: start: 20060515
  9. NEBCINE [Concomitant]
     Active Substance: TOBRAMYCIN

REACTIONS (10)
  - Bronchitis [Recovered/Resolved]
  - Lung infection [Recovered/Resolved]
  - Bronchitis [Recovered/Resolved]
  - Bronchitis bacterial [Recovered/Resolved]
  - Sinusitis [Recovered/Resolved]
  - Febrile bone marrow aplasia [Recovered/Resolved]
  - Wrist fracture [Recovered/Resolved]
  - Upper respiratory tract infection [Recovered/Resolved]
  - Lung infection [Recovered/Resolved]
  - Bronchial disorder [Recovered/Resolved]

NARRATIVE: CASE EVENT DATE: 200606
